FAERS Safety Report 11989946 (Version 1)
Quarter: 2016Q1

REPORT INFORMATION
  Report Type: Spontaneous
  Country: US (occurrence: US)
  Receive Date: 20160202
  Receipt Date: 20160202
  Transmission Date: 20160526
  Serious: No
  Sender: FDA-Public Use
  Company Number: US-PFIZER INC-2016050908

PATIENT
  Age: 72 Year
  Sex: Female

DRUGS (22)
  1. BENAZEPRIL HCL [Concomitant]
     Active Substance: BENAZEPRIL HYDROCHLORIDE
     Dosage: 20 MG, 1X/DAY
     Route: 048
  2. DOFETILIDE [Suspect]
     Active Substance: DOFETILIDE
     Dosage: 250 UG, 2X/DAY (1 CAPSULE, 1 IN 12 HR)
     Route: 048
  3. SUCRALFATE. [Concomitant]
     Active Substance: SUCRALFATE
     Dosage: 1 G, 4X/DAY (BEFORE MEALS AND AT BEDTIME)
     Route: 048
  4. VICODIN [Suspect]
     Active Substance: ACETAMINOPHEN\HYDROCODONE BITARTRATE
     Dosage: UNK
     Route: 048
  5. PRAVASTATIN SODIUM. [Concomitant]
     Active Substance: PRAVASTATIN SODIUM
     Dosage: 40 MG, 1X/DAY
     Route: 048
  6. VITAMIN D3 [Concomitant]
     Active Substance: CHOLECALCIFEROL
     Dosage: 5000 IU, 1X/DAY
     Route: 048
  7. CELEBREX [Suspect]
     Active Substance: CELECOXIB
     Dosage: 100 MG, AS NEEDED
  8. METAMUCIL [Concomitant]
     Active Substance: PLANTAGO SEED
     Dosage: UNK (ONE SCOOP IN A OUNCEO OF WATER UP TO THREE TIMES A DAY)
     Route: 048
  9. ESTRIOL [Concomitant]
     Active Substance: ESTRIOL
     Dosage: UNK (3 IN 1 WK)
  10. NEURONTIN [Suspect]
     Active Substance: GABAPENTIN
     Dosage: UNK
  11. OMEPRAZOLE. [Concomitant]
     Active Substance: OMEPRAZOLE
     Dosage: UNK, CYCLIC (2 PILLS 1 HOUR BEFORE THE FIRST MEAL OF THE DAY FOR 1 MONTH THEN RESUME DAILY (1 IN 1D)
     Route: 048
  12. DIGOXIN. [Concomitant]
     Active Substance: DIGOXIN
     Dosage: 0.125 MG, 1X/DAY
     Route: 048
  13. MAGNESIUM NITRATE. [Concomitant]
     Active Substance: MAGNESIUM NITRATE
     Indication: CONSTIPATION
     Dosage: UNK UNK, 1X/DAY (SOLUTION, 4 TO 8 OUNCES)
     Route: 048
  14. SIMVASTATIN. [Concomitant]
     Active Substance: SIMVASTATIN
     Dosage: UNK, 1X/DAY  (ONE HALF 1IN 1D)
  15. ARMOUR THYROID [Concomitant]
     Active Substance: THYROID, PORCINE
     Dosage: 90 MG, 1X/DAY
     Route: 048
  16. FUROSEMIDE. [Concomitant]
     Active Substance: FUROSEMIDE
     Indication: WEIGHT INCREASED
     Dosage: 20 MG, AS NEEDED (1 IN 1D)
     Route: 048
  17. TRAMADOL HYDROCHLORIDE. [Concomitant]
     Active Substance: TRAMADOL HYDROCHLORIDE
     Indication: PAIN
     Dosage: 50 MG, AS NEEDED (1 IN 6 HR)
     Route: 048
  18. GLUCOTROL XL [Suspect]
     Active Substance: GLIPIZIDE
     Dosage: UNK
  19. WARFARIN SODIUM. [Concomitant]
     Active Substance: WARFARIN SODIUM
     Dosage: UNK UNK, CYCLIC (2.5 MG ON MON AND 5 MG ALL OTHER DAYS)
     Route: 048
  20. NITROGLYCERIN. [Concomitant]
     Active Substance: NITROGLYCERIN
     Indication: CHEST PAIN
     Dosage: 0.4 MG, AS NEEDED (MAY REPEAT 3 TIME/ 1 TABLET, AS REQUIRED)
     Route: 060
  21. PERCOCET [Concomitant]
     Active Substance: ACETAMINOPHEN\OXYCODONE HYDROCHLORIDE
     Indication: PAIN
     Dosage: UNK, AS NEEDED (4 IN 1 D), FOR NO LONGER THAN 5 DAYS
     Route: 048
  22. CARVEDILOL. [Concomitant]
     Active Substance: CARVEDILOL
     Dosage: 25 MG, 2X/DAY (WITH FOOD)
     Route: 048

REACTIONS (2)
  - Feeling drunk [Unknown]
  - Dizziness [Unknown]
